FAERS Safety Report 14021450 (Version 3)
Quarter: 2018Q2

REPORT INFORMATION
  Report Type: Spontaneous
  Country: US (occurrence: US)
  Receive Date: 20170928
  Receipt Date: 20180409
  Transmission Date: 20180711
  Serious: Yes (Hospitalization)
  Sender: FDA-Public Use
  Company Number: US-CLOVIS ONCOLOGY-CLO-2017-000736

PATIENT
  Age: 74 Year
  Sex: Female

DRUGS (9)
  1. METOPROLOL ER [Concomitant]
     Active Substance: METOPROLOL SUCCINATE
     Indication: PRODUCT USED FOR UNKNOWN INDICATION
     Dosage: 50 MG, QD
     Route: 048
  2. LOSARTAN. [Concomitant]
     Active Substance: LOSARTAN
     Indication: PRODUCT USED FOR UNKNOWN INDICATION
     Dosage: 25 MG, QD
  3. NIFEDIPINE. [Concomitant]
     Active Substance: NIFEDIPINE
     Indication: PRODUCT USED FOR UNKNOWN INDICATION
     Dosage: 30 MG, UNK
  4. SYNTHROID [Concomitant]
     Active Substance: LEVOTHYROXINE SODIUM
     Indication: PRODUCT USED FOR UNKNOWN INDICATION
     Dosage: 50 ?G, UNK
  5. TERAZOSIN [Concomitant]
     Active Substance: TERAZOSIN\TERAZOSIN HYDROCHLORIDE
     Indication: PRODUCT USED FOR UNKNOWN INDICATION
     Dosage: 4 MG, UNK
  6. CLONAZEPAM. [Concomitant]
     Active Substance: CLONAZEPAM
     Indication: TEMPOROMANDIBULAR JOINT SYNDROME
     Dosage: 2 MG, BID
  7. GABAPENTIN. [Concomitant]
     Active Substance: GABAPENTIN
     Indication: PRODUCT USED FOR UNKNOWN INDICATION
     Dosage: UNK, BID
  8. RUBRACA [Suspect]
     Active Substance: RUCAPARIB CAMSYLATE
     Indication: OVARIAN CANCER
     Dosage: 600 MG, BID
     Route: 048
     Dates: start: 201706
  9. PERCOCET [Concomitant]
     Active Substance: ACETAMINOPHEN\OXYCODONE HYDROCHLORIDE
     Indication: ARTHRALGIA
     Dosage: 0.25

REACTIONS (21)
  - Blood glucose increased [Unknown]
  - Pain [Unknown]
  - Abdominal pain upper [Not Recovered/Not Resolved]
  - Blood creatinine increased [Unknown]
  - Haemoglobin decreased [Unknown]
  - Dysuria [Unknown]
  - Blood albumin decreased [Unknown]
  - Glomerular filtration rate decreased [Unknown]
  - Micturition urgency [Unknown]
  - Back pain [Unknown]
  - Musculoskeletal pain [Unknown]
  - Arthralgia [Unknown]
  - Blood alkaline phosphatase increased [Unknown]
  - Red cell distribution width increased [Unknown]
  - Fatigue [Unknown]
  - Nausea [Unknown]
  - Oedema peripheral [Unknown]
  - Mean cell volume increased [Unknown]
  - Neuropathy peripheral [Unknown]
  - Laboratory test abnormal [Unknown]
  - Decreased appetite [Unknown]

NARRATIVE: CASE EVENT DATE: 20170702
